FAERS Safety Report 4385859-9 (Version None)
Quarter: 2004Q2

REPORT INFORMATION
  Report Type: 
  Country: None (occurrence: None)
  Receive Date: 20040628
  Receipt Date: 20040616
  Transmission Date: 20050107
  Serious: Yes (Hospitalization)
  Sender: FDA-Public Use
  Company Number: JP-BRISTOL-MYERS SQUIBB COMPANY-12623039

PATIENT
  Age: 59 Year
  Sex: Male

DRUGS (6)
  1. EFAVIRENZ CAPS [Suspect]
     Indication: HIV INFECTION
     Route: 048
  2. PIPERACILLIN [Suspect]
     Indication: SEPSIS
  3. RITONAVIR [Suspect]
  4. CEFAZOLIN SODIUM [Concomitant]
  5. DIDANOSINE [Concomitant]
  6. VANCOMYCIN HCL [Concomitant]

REACTIONS (5)
  - EOSINOPHIL COUNT INCREASED [None]
  - HYPOTENSION [None]
  - LYMPHADENOPATHY [None]
  - PYREXIA [None]
  - RASH [None]
